FAERS Safety Report 9354617 (Version 1)
Quarter: 2013Q2

REPORT INFORMATION
  Report Type: Spontaneous
  Country: US (occurrence: US)
  Receive Date: 20130618
  Receipt Date: 20130618
  Transmission Date: 20140414
  Serious: No
  Sender: FDA-Public Use
  Company Number: US-US-EMD SERONO, INC.-7029602

PATIENT
  Age: 45 Year
  Sex: Female

DRUGS (3)
  1. REBIF [Suspect]
     Indication: MULTIPLE SCLEROSIS
     Route: 058
     Dates: start: 20100928
  2. MORPHINE [Concomitant]
  3. ROBAXIN [Concomitant]

REACTIONS (8)
  - Dyspnoea [Recovering/Resolving]
  - Fall [Unknown]
  - Muscular weakness [Unknown]
  - Dizziness [Unknown]
  - Asthenia [Unknown]
  - Chest pain [Recovering/Resolving]
  - Chills [Unknown]
  - Injection site erythema [Unknown]
